FAERS Safety Report 5151925-3 (Version None)
Quarter: 2006Q4

REPORT INFORMATION
  Report Type: 
  Country: None (occurrence: None)
  Receive Date: 20061106
  Receipt Date: 20061023
  Transmission Date: 20070319
  Serious: Yes (Other)
  Sender: FDA-Public Use
  Company Number: 200410204BBE

PATIENT
  Age: 53 Year
  Sex: Male

DRUGS (2)
  1. IMMUNE GLOBULIN INTRAVENOUS (HUMAN) [Suspect]
     Indication: MILLER FISHER SYNDROME
     Dosage: 400 MG/KG, INTRAVENOUS
     Route: 042
  2. GAMIMUNE N 10% [Suspect]
     Dosage: 400 MG/KG INTRAVENOUS
     Route: 042

REACTIONS (2)
  - REVERSIBLE POSTERIOR LEUKOENCEPHALOPATHY SYNDROME [None]
  - SLEEP APNOEA SYNDROME [None]
